FAERS Safety Report 5750727-4 (Version None)
Quarter: 2008Q2

REPORT INFORMATION
  Report Type: 
  Country: None (occurrence: None)
  Receive Date: 20080523
  Receipt Date: 20080523
  Transmission Date: 20081010
  Serious: Yes (Death)
  Sender: FDA-Public Use
  Company Number: None

PATIENT
  Sex: Female
  Weight: 17.8 kg

DRUGS (5)
  1. DOXORUBICIN HYDROCHLORIDE [Suspect]
     Dosage: 162 MG
  2. ETOPOSIDE [Suspect]
     Dosage: 1820 MG
  3. VINCRISTINE SULFATE [Suspect]
     Dosage: 14.4 MG
  4. CARBOPLATIN [Suspect]
     Dosage: 1720 MG
  5. CYCLOPHOSPHAMIDE [Suspect]
     Dosage: 5971 MG

REACTIONS (4)
  - CARDIOMYOPATHY [None]
  - ELECTROCARDIOGRAM QT PROLONGED [None]
  - RESPIRATION ABNORMAL [None]
  - TREATMENT NONCOMPLIANCE [None]
